FAERS Safety Report 21636011 (Version 3)
Quarter: 2023Q1

REPORT INFORMATION
  Report Type: Spontaneous
  Country: US (occurrence: US)
  Receive Date: 20221123
  Receipt Date: 20230221
  Transmission Date: 20230417
  Serious: Yes (Death, Other)
  Sender: FDA-Public Use
  Company Number: US-BRISTOL-MYERS SQUIBB COMPANY-2022-142572

PATIENT
  Age: 60 Year
  Sex: Male
  Weight: 79.38 kg

DRUGS (15)
  1. OPDIVO [Suspect]
     Active Substance: NIVOLUMAB
     Indication: Rectal cancer
     Dosage: 240MG VIAL
     Route: 042
     Dates: start: 20220826
  2. PHENERGAN [Concomitant]
     Active Substance: PROMETHAZINE HYDROCHLORIDE
     Indication: Nausea
     Dosage: APPLY 0.5 ML- TOPICALLY TO INNER WRIST Q 4 HOURS PRN NAUSEA
     Route: 061
  3. REGORAFENIB [Concomitant]
     Active Substance: REGORAFENIB
     Indication: Product used for unknown indication
     Dosage: 4 TABLETS TAKE WHOLE WITH LOW-FAT BREAK FAST
     Route: 048
     Dates: start: 20220826
  4. PHYTONADIONE [Concomitant]
     Active Substance: PHYTONADIONE
     Indication: Product used for unknown indication
     Dosage: ORAL (VITAMIN KL) 5 MG TABLET 2 TABLET ORALLY DAILY
     Route: 048
  5. OXYCODONE [Concomitant]
     Active Substance: OXYCODONE
     Indication: Product used for unknown indication
     Dosage: 3-4 DAILY
     Route: 048
  6. FENTANYL [Concomitant]
     Active Substance: FENTANYL
     Indication: Product used for unknown indication
     Dosage: 12 MCG/HR 12 MCG/HR PATCH 72 HOUR 1 PATCH TRANS DERMALLY EVERY 72 HOURS
  7. FENTANYL [Concomitant]
     Active Substance: FENTANYL
     Dosage: 12 MCG/HR 12 MCG/HR PATCH 72 HOUR 1 PATCH TRANS DERMALLY EVERY 72 HOURS
  8. FENTANYL [Concomitant]
     Active Substance: FENTANYL
     Dosage: PATCH 25 MCG,^HR APPLY ONE PATCH, CHANGE Q 72 H
  9. HYDROCORTISONE [Concomitant]
     Active Substance: HYDROCORTISONE
     Indication: Product used for unknown indication
     Dosage: % LOTION 1 APPLICATION TOPICALLY 2 TIMES PER DAY. APPLY TO FACE, ARMS, BACK. AND CHEST FOR THE FIRST
     Route: 061
  10. CANNABIS SATIVA SUBSP. INDICA TOP [Concomitant]
     Active Substance: CANNABIS SATIVA SUBSP. INDICA TOP
     Indication: Product used for unknown indication
     Dosage: MEDICINAL) MISCELLANEOUS VAPORIZER - I-5X DAILY
  11. LIDOCAINE\PRILOCAINE [Concomitant]
     Active Substance: LIDOCAINE\PRILOCAINE
     Indication: Product used for unknown indication
     Dosage: 1 APPLICATION TOPICALLY AS DIRECTED. SIG: APPLY LIBERALLY TO PON SITE 2 HOURS PRIOR TO USE . COVER W
     Route: 061
  12. LORAZEPAM [Concomitant]
     Active Substance: LORAZEPAM
     Indication: Nausea
     Dosage: SIG: 1 PO OR SL Q 8 HOURS PRN NAUSEA
     Route: 048
  13. OXYCODONE [Concomitant]
     Active Substance: OXYCODONE
     Indication: Pain
     Dosage: ORAL 10 MG TABLET TAKE 1 TAB PO Q 4 H PM PAIN ,
     Route: 048
  14. REGORAFENIB [Concomitant]
     Active Substance: REGORAFENIB
     Indication: Product used for unknown indication
     Dosage: ORAL 40 MG TABLET TAKE WHOLE WITH A LOW-FAT BREAKFAST. TAKE 1 DAILY FIRST 7 D, 2 DAILY NEXT 7 D, 3 D
     Route: 048
  15. MILK THISTLE [SILYBUM MARIANUM SEED] [Concomitant]
     Indication: Product used for unknown indication
     Route: 048

REACTIONS (2)
  - Malignant neoplasm progression [Fatal]
  - Nephritis [Unknown]

NARRATIVE: CASE EVENT DATE: 20220909
